FAERS Safety Report 24196585 (Version 1)
Quarter: 2024Q3

REPORT INFORMATION
  Report Type: Spontaneous
  Country: US (occurrence: US)
  Receive Date: 20240810
  Receipt Date: 20240810
  Transmission Date: 20241017
  Serious: Yes (Other)
  Sender: ABBVIE
  Company Number: US-ABBVIE-5872962

PATIENT
  Age: 81 Year
  Sex: Female

DRUGS (1)
  1. SYNTHROID [Suspect]
     Active Substance: LEVOTHYROXINE SODIUM
     Indication: Product used for unknown indication
     Route: 048
     Dates: end: 202405

REACTIONS (4)
  - Cerebrovascular accident [Unknown]
  - Myocardial infarction [Unknown]
  - Alopecia [Recovering/Resolving]
  - Therapy cessation [Unknown]

NARRATIVE: CASE EVENT DATE: 20240501
